FAERS Safety Report 15694578 (Version 5)
Quarter: 2019Q1

REPORT INFORMATION
  Report Type: Report from Study
  Country: RU (occurrence: RU)
  Receive Date: 20181206
  Receipt Date: 20190118
  Transmission Date: 20190417
  Serious: Yes (Hospitalization, Other)
  Sender: FDA-Public Use
  Company Number: RU-GLAXOSMITHKLINE-RU2018GSK218926

PATIENT
  Age: 36 Year
  Sex: Male
  Weight: 75.8 kg

DRUGS (4)
  1. DOLUTEGRAVIR [Suspect]
     Active Substance: DOLUTEGRAVIR
     Indication: HIV INFECTION
     Dosage: 50 MG, UNK
     Dates: start: 20170403, end: 20181128
  2. LAMIVUDINE. [Suspect]
     Active Substance: LAMIVUDINE
     Indication: HIV INFECTION
     Dosage: 300 MG, UNK
     Dates: start: 20180403, end: 20181128
  3. PANCREATIN [Concomitant]
     Active Substance: PANCRELIPASE
     Indication: HEPATITIS ACUTE
     Dosage: 3 DF, UNK
     Route: 048
     Dates: start: 20181128
  4. FLUCONAZOLE. [Concomitant]
     Active Substance: FLUCONAZOLE
     Dosage: 150 MG, 1 TIMES IN WEEK
     Dates: end: 20181113

REACTIONS (1)
  - Acute hepatitis C [Not Recovered/Not Resolved]

NARRATIVE: CASE EVENT DATE: 20181129
